FAERS Safety Report 4774248-0 (Version None)
Quarter: 2005Q3

REPORT INFORMATION
  Report Type: 
  Country: None (occurrence: None)
  Receive Date: 20050914
  Receipt Date: 20050307
  Transmission Date: 20060218
  Serious: Yes (Death)
  Sender: FDA-Public Use
  Company Number: 163-20785-05030164

PATIENT
  Age: 65 Year
  Sex: Male

DRUGS (2)
  1. THALOMID [Suspect]
     Indication: LYMPHOMA
     Dosage: 200 MG, DAILY, ORAL
     Route: 048
     Dates: start: 20041229, end: 20050214
  2. THALOMID [Suspect]
     Indication: MALIGNANT MELANOMA
     Dosage: 200 MG, DAILY, ORAL
     Route: 048
     Dates: start: 20041229, end: 20050214

REACTIONS (4)
  - DEATH [None]
  - DISEASE PROGRESSION [None]
  - METASTASES TO LUNG [None]
  - RESPIRATORY FAILURE [None]
